FAERS Safety Report 8167159-4 (Version None)
Quarter: 2012Q1

REPORT INFORMATION
  Report Type: 
  Country: None (occurrence: None)
  Receive Date: 20120227
  Receipt Date: 20120213
  Transmission Date: 20120608
  Serious: Yes (Hospitalization)
  Sender: FDA-Public Use
  Company Number: JP-SANOFI-AVENTIS-2011SA084290

PATIENT
  Sex: Male
  Weight: 65 kg

DRUGS (13)
  1. ALL OTHER THERAPEUTIC PRODUCTS [Concomitant]
     Route: 048
     Dates: start: 20090105, end: 20090303
  2. ADALAT CC [Concomitant]
     Indication: ANGINA PECTORIS
     Route: 048
     Dates: start: 20090109, end: 20090831
  3. PANTOSIN [Concomitant]
     Indication: ANGINA PECTORIS
     Dates: start: 20090105, end: 20090303
  4. PLAVIX [Suspect]
     Dosage: LOADING DOSE
     Route: 065
     Dates: start: 20090105, end: 20090105
  5. HEPARIN [Concomitant]
     Dosage: DOSE:12000 UNIT(S)
     Dates: start: 20090105, end: 20090105
  6. ROSUVASTATIN CALCIUM [Concomitant]
     Route: 048
     Dates: start: 20090105
  7. GASMOTIN [Concomitant]
     Route: 048
     Dates: start: 20090603
  8. QUINAPRIL HCL [Concomitant]
     Route: 048
     Dates: start: 20090105
  9. SIGMART [Concomitant]
     Indication: ANGINA PECTORIS
     Dates: start: 20090105, end: 20090105
  10. PLAVIX [Suspect]
     Route: 065
     Dates: start: 20090106
  11. ASPIRIN [Concomitant]
     Route: 048
     Dates: start: 20090105
  12. LANSOPRAZOLE [Concomitant]
     Route: 048
     Dates: start: 20090105, end: 20090602
  13. ISOSORBIDE MONONITRATE [Concomitant]
     Indication: ANGINA PECTORIS
     Route: 048
     Dates: start: 20090826

REACTIONS (1)
  - CORONARY ARTERY STENOSIS [None]
